FAERS Safety Report 12728309 (Version 1)
Quarter: 2016Q3

REPORT INFORMATION
  Report Type: Spontaneous
  Country: US (occurrence: US)
  Receive Date: 20160907
  Receipt Date: 20160907
  Transmission Date: 20161109
  Serious: Yes (Other)
  Sender: FDA-Public Use
  Company Number: None

PATIENT
  Age: 61 Year
  Sex: Female

DRUGS (3)
  1. FAMOTIDINE 20 MG [Suspect]
     Active Substance: FAMOTIDINE
  2. ADALAT [Suspect]
     Active Substance: NIFEDIPINE
  3. DIGESTIVE ADVANTAGE DAILY PROBIOTIC [Concomitant]
     Active Substance: LACTOBACILLUS REUTERI

REACTIONS (1)
  - Drug dispensing error [None]

NARRATIVE: CASE EVENT DATE: 20160906
